FAERS Safety Report 8379178-3 (Version None)
Quarter: 2012Q1

REPORT INFORMATION
  Report Type: 
  Country: None (occurrence: None)
  Receive Date: 20120323
  Receipt Date: 20110412
  Transmission Date: 20120608
  Serious: Yes (Other)
  Sender: FDA-Public Use
  Company Number: 163-21880-11031982

PATIENT
  Age: 87 Year
  Sex: Male

DRUGS (4)
  1. BYSTOLIC (NEBIVOLOL HYDROCHLORIDE) (UNKNOWN) [Concomitant]
  2. REVLIMID [Suspect]
     Indication: MULTIPLE MYELOMA
     Dosage: 25 MG, DAILY 21/28, PO
     Route: 048
     Dates: start: 20060801, end: 20110405
  3. HYZAAR (HYZAAR) (UNKNOWN) [Concomitant]
  4. SIMVASTIN (SIMVASTATIN) (UNKNOWN) [Concomitant]

REACTIONS (4)
  - UPPER RESPIRATORY TRACT INFECTION [None]
  - FATIGUE [None]
  - BLOOD PRESSURE INCREASED [None]
  - CONSTIPATION [None]
